FAERS Safety Report 22042032 (Version 1)
Quarter: 2023Q1

REPORT INFORMATION
  Report Type: Spontaneous
  Country: US (occurrence: US)
  Receive Date: 20230227
  Receipt Date: 20230227
  Transmission Date: 20230417
  Serious: No
  Sender: FDA-Public Use
  Company Number: US-VIATRISIRMSP-26334

PATIENT
  Age: 68 Year
  Sex: Female
  Weight: 49.9 kg

DRUGS (3)
  1. TRETINOIN [Suspect]
     Active Substance: TRETINOIN
     Indication: Skin wrinkling
     Route: 061
     Dates: start: 202302
  2. TRETINOIN [Suspect]
     Active Substance: TRETINOIN
     Indication: Solar lentigo
  3. TRETINOIN [Suspect]
     Active Substance: TRETINOIN
     Indication: Sunscreen sensitivity

REACTIONS (3)
  - Application site irritation [Unknown]
  - Application site exfoliation [Unknown]
  - Drug ineffective [Unknown]

NARRATIVE: CASE EVENT DATE: 20230101
